FAERS Safety Report 21614552 (Version 2)
Quarter: 2022Q4

REPORT INFORMATION
  Report Type: Spontaneous
  Country: CR (occurrence: None)
  Receive Date: 20221118
  Receipt Date: 20221128
  Transmission Date: 20230113
  Serious: Yes (Death, Other)
  Sender: FDA-Public Use
  Company Number: CR-Merck Healthcare KGaA-9366552

PATIENT
  Age: 74 Year
  Sex: Female

DRUGS (1)
  1. BAVENCIO [Suspect]
     Active Substance: AVELUMAB
     Indication: Neuroendocrine carcinoma of the skin
     Route: 042
     Dates: start: 201709, end: 20221114

REACTIONS (9)
  - Death [Fatal]
  - Hip fracture [Unknown]
  - Fall [Unknown]
  - Pain [Recovering/Resolving]
  - Bedridden [Unknown]
  - Feeling abnormal [Unknown]
  - Mood altered [Unknown]
  - Speech disorder [Unknown]
  - Wheelchair user [Unknown]

NARRATIVE: CASE EVENT DATE: 20221115
